FAERS Safety Report 7948616-X (Version None)
Quarter: 2011Q4

REPORT INFORMATION
  Report Type: 
  Country: None (occurrence: None)
  Receive Date: 20111130
  Receipt Date: 20111121
  Transmission Date: 20120403
  Serious: Yes (Hospitalization, Other)
  Sender: FDA-Public Use
  Company Number: US-US-EMD SERONO, INC.-7059109

PATIENT
  Sex: Female
  Weight: 65 kg

DRUGS (9)
  1. CONCERTA [Concomitant]
  2. REBIF [Suspect]
     Indication: MULTIPLE SCLEROSIS
     Route: 058
     Dates: start: 20071126, end: 20110501
  3. REBIF [Suspect]
     Route: 058
     Dates: start: 20111001, end: 20111107
  4. GLIPIZIDE [Concomitant]
  5. REBIF [Suspect]
     Route: 058
     Dates: start: 20110620, end: 20110901
  6. UNSPECIFIED ORAL MEDICATION [Concomitant]
     Indication: TYPE 2 DIABETES MELLITUS
     Route: 048
  7. LISINOPRIL [Concomitant]
  8. METFORMIN HCL [Concomitant]
  9. VICODIN [Concomitant]
     Indication: PAIN

REACTIONS (6)
  - OSTEOARTHRITIS [None]
  - CARTILAGE INJURY [None]
  - MEMORY IMPAIRMENT [None]
  - PAIN [None]
  - CHEST DISCOMFORT [None]
  - INAPPROPRIATE SCHEDULE OF DRUG ADMINISTRATION [None]
